FAERS Safety Report 7125264-5 (Version None)
Quarter: 2010Q4

REPORT INFORMATION
  Report Type: 
  Country: None (occurrence: None)
  Receive Date: 20101129
  Receipt Date: 20101118
  Transmission Date: 20110411
  Serious: Yes (Other)
  Sender: FDA-Public Use
  Company Number: US-JNJFOC-20101107059

PATIENT
  Age: 68 Year
  Sex: Female

DRUGS (4)
  1. TYLENOL-500 [Suspect]
     Route: 065
  2. TYLENOL-500 [Suspect]
     Indication: INSOMNIA
     Route: 065
  3. BUCKLEYS DM [Suspect]
     Indication: COUGH
     Dosage: 5 ML TAKEN AT 4PM AND 10:30 PM ON 27-OCT-2010, AND 2 AM AND 8AM ON 28-OCT-2010.
     Route: 065
  4. BUCKLEY'S MIXTURE [Concomitant]
     Indication: OROPHARYNGEAL PAIN
     Route: 065

REACTIONS (3)
  - HALLUCINATION, VISUAL [None]
  - INITIAL INSOMNIA [None]
  - TONGUE DISCOLOURATION [None]
